FAERS Safety Report 14844482 (Version 1)
Quarter: 2018Q2

REPORT INFORMATION
  Report Type: Spontaneous
  Country: CA (occurrence: CA)
  Receive Date: 20180503
  Receipt Date: 20180503
  Transmission Date: 20180711
  Serious: Yes (Life-Threatening, Disabling)
  Sender: FDA-Public Use
  Company Number: CA-TEVA-2018-CA-886687

PATIENT
  Age: 42 Year
  Sex: Female
  Weight: 71.28 kg

DRUGS (7)
  1. PAROXETINE. [Suspect]
     Active Substance: PAROXETINE
     Route: 048
  2. PAROXETINE. [Suspect]
     Active Substance: PAROXETINE
     Route: 048
  3. PAROXETINE. [Suspect]
     Active Substance: PAROXETINE
     Indication: ANXIETY
     Route: 048
  4. IRON [Concomitant]
     Active Substance: IRON
  5. SYNTHROID [Concomitant]
     Active Substance: LEVOTHYROXINE SODIUM
  6. SPRAY FOR SINUNITIS [Concomitant]
  7. LEVOTHYROXINE. [Concomitant]
     Active Substance: LEVOTHYROXINE

REACTIONS (63)
  - Aphonia [Recovering/Resolving]
  - Bradyphrenia [Recovering/Resolving]
  - Change of bowel habit [Recovering/Resolving]
  - Dissociation [Recovering/Resolving]
  - Emotional poverty [Recovering/Resolving]
  - Fatigue [Recovering/Resolving]
  - Feeling of despair [Recovering/Resolving]
  - Headache [Recovering/Resolving]
  - Hypersomnia [Recovering/Resolving]
  - Lethargy [Recovering/Resolving]
  - Parosmia [Recovering/Resolving]
  - Sensation of foreign body [Recovering/Resolving]
  - Cough [Recovering/Resolving]
  - Dysmenorrhoea [Recovering/Resolving]
  - Dysphonia [Recovering/Resolving]
  - Hypoacusis [Recovering/Resolving]
  - Nausea [Recovering/Resolving]
  - Oropharyngeal pain [Recovering/Resolving]
  - Palpitations [Recovering/Resolving]
  - Sneezing [Recovering/Resolving]
  - Balance disorder [Recovering/Resolving]
  - Dizziness [Recovering/Resolving]
  - Paranasal sinus discomfort [Recovering/Resolving]
  - Ageusia [Recovering/Resolving]
  - Dry throat [Recovering/Resolving]
  - Panic attack [Recovering/Resolving]
  - Sinusitis [Recovering/Resolving]
  - Sleep disorder [Recovering/Resolving]
  - Urinary tract disorder [Recovering/Resolving]
  - Anxiety [Recovering/Resolving]
  - Asthenia [Recovering/Resolving]
  - Cold sweat [Recovering/Resolving]
  - Disturbance in attention [Recovering/Resolving]
  - Dysarthria [Recovering/Resolving]
  - Ear discomfort [Recovering/Resolving]
  - Ear pain [Recovering/Resolving]
  - Insomnia [Recovering/Resolving]
  - Memory impairment [Recovering/Resolving]
  - Visual impairment [Recovering/Resolving]
  - Yawning [Recovering/Resolving]
  - Accommodation disorder [Recovering/Resolving]
  - Dyspnoea [Recovering/Resolving]
  - Irritability [Recovering/Resolving]
  - Movement disorder [Recovering/Resolving]
  - Social avoidant behaviour [Recovering/Resolving]
  - Throat tightness [Recovering/Resolving]
  - Tongue discolouration [Recovering/Resolving]
  - Upper-airway cough syndrome [Recovering/Resolving]
  - Apathy [Recovering/Resolving]
  - Ear congestion [Recovering/Resolving]
  - Migraine [Recovering/Resolving]
  - Nightmare [Recovering/Resolving]
  - Pain in extremity [Recovering/Resolving]
  - Photophobia [Recovering/Resolving]
  - Blood iron decreased [Recovering/Resolving]
  - Confusional state [Recovering/Resolving]
  - Eye pain [Recovering/Resolving]
  - Hypothyroidism [Recovering/Resolving]
  - Muscle tightness [Recovering/Resolving]
  - Musculoskeletal stiffness [Recovering/Resolving]
  - Pain [Recovering/Resolving]
  - Sinus congestion [Recovering/Resolving]
  - Tremor [Recovering/Resolving]
